FAERS Safety Report 8459251 (Version 6)
Quarter: 2013Q2

REPORT INFORMATION
  Report Type: Spontaneous
  Country: US (occurrence: US)
  Receive Date: 20120314
  Receipt Date: 20130403
  Transmission Date: 20140414
  Serious: Yes (Hospitalization)
  Sender: FDA-Public Use
  Company Number: US-B.I. PHARMACEUTICALS,INC./RIDGEFIELD-2012-BP-04357BP

PATIENT
  Age: 71 Year
  Sex: Male
  Weight: 113.4 kg

DRUGS (13)
  1. PRADAXA [Suspect]
     Indication: ATRIAL FIBRILLATION
     Dosage: 300 MG
     Route: 048
     Dates: start: 20111004, end: 20111012
  2. CALCIUM [Concomitant]
     Dosage: 1200 NR
  3. COREG [Concomitant]
     Dosage: 25 NR
     Dates: start: 2002
  4. FISH OIL [Concomitant]
     Dosage: 1200 NR
  5. GARLIC [Concomitant]
     Dosage: 1000 NR
  6. HECTORAL [Concomitant]
     Dosage: 2.5 NR
  7. HYDROCHLOROTHIAZIDE [Concomitant]
     Dosage: 12.5 NR
  8. LEVOTHYROXINE [Concomitant]
     Dosage: 150 MCG
     Dates: start: 1992
  9. LYCOPENE [Concomitant]
     Dosage: 10 NR
  10. MULTAQ [Concomitant]
     Dosage: 800 NR
  11. MULTIVITAMIN [Concomitant]
  12. VITAMIN B12 [Concomitant]
  13. ACTONEL [Concomitant]

REACTIONS (2)
  - Lower gastrointestinal haemorrhage [Unknown]
  - Anaemia [Unknown]
